FAERS Safety Report 6318779-0 (Version None)
Quarter: 2009Q3

REPORT INFORMATION
  Report Type: 
  Country: None (occurrence: None)
  Receive Date: 20090819
  Receipt Date: 20090813
  Transmission Date: 20100115
  Serious: Yes (Life-Threatening, Hospitalization)
  Sender: FDA-Public Use
  Company Number: 310016M09FRA

PATIENT
  Age: 25 Year
  Sex: Female

DRUGS (5)
  1. CONAL-F (FOLLITROPIN ALFA FOR INJECTION) (FOLLITROPIN ALFA) [Suspect]
     Indication: IN VITRO FERTILISATION
     Dosage: 1 DOSAGE FORMS, 1 IN 1 DAYS, SUBCUTANEOUS; 1 DOSAGE FORMS, 1 IN 1 DAYS, SUBCUTANEOUS
     Route: 058
     Dates: start: 20081127, end: 20081204
  2. CONAL-F (FOLLITROPIN ALFA FOR INJECTION) (FOLLITROPIN ALFA) [Suspect]
     Indication: IN VITRO FERTILISATION
     Dosage: 1 DOSAGE FORMS, 1 IN 1 DAYS, SUBCUTANEOUS; 1 DOSAGE FORMS, 1 IN 1 DAYS, SUBCUTANEOUS
     Route: 058
     Dates: start: 20081205, end: 20081219
  3. OVIDREL [Suspect]
     Indication: IN VITRO FERTILISATION
     Dosage: SUBCUTANEOUS
     Route: 058
     Dates: start: 20081220
  4. CLOMID [Suspect]
     Indication: ARTIFICIAL INSEMINATION BY PARTNER
     Dosage: 1 DOSAGE FORMS, 1 IN 1 DAYS
     Dates: start: 20081222, end: 20081227
  5. DECAPEPTYL (TRIPTORELIN ACETATE) [Suspect]
     Indication: IN VITRO FERTILISATION
     Dosage: 1 DOSAGE FORMS, 1 IN 1 DAYS INTRAMUSCULAR
     Route: 030
     Dates: start: 20081109

REACTIONS (1)
  - MYOCARDIAL INFARCTION [None]
